FAERS Safety Report 8410825-3 (Version None)
Quarter: 2012Q2

REPORT INFORMATION
  Report Type: 
  Country: None (occurrence: None)
  Receive Date: 20120605
  Receipt Date: 20120531
  Transmission Date: 20120825
  Serious: Yes (Death)
  Sender: FDA-Public Use
  Company Number: GB-PFIZER INC-2012081108

PATIENT
  Age: 59 Year
  Sex: Female

DRUGS (1)
  1. AXITINIB [Suspect]
     Indication: METASTATIC RENAL CELL CARCINOMA
     Dosage: UNK
     Dates: start: 20091230

REACTIONS (4)
  - CORONARY ARTERY THROMBOSIS [None]
  - DISEASE PROGRESSION [None]
  - ARTERIOSCLEROSIS CORONARY ARTERY [None]
  - RENAL CANCER [None]
